FAERS Safety Report 17373858 (Version 3)
Quarter: 2020Q1

REPORT INFORMATION
  Report Type: Spontaneous
  Country: US (occurrence: US)
  Receive Date: 20200206
  Receipt Date: 20200310
  Transmission Date: 20200409
  Serious: Yes (Other)
  Sender: FDA-Public Use
  Company Number: NVSC2020US025248

PATIENT
  Sex: Female

DRUGS (2)
  1. TASIGNA [Suspect]
     Active Substance: NILOTINIB
     Indication: CHRONIC MYELOID LEUKAEMIA
     Dosage: 400 MG, Q12H
     Route: 048
     Dates: start: 20140204
  2. TRESIBA [Concomitant]
     Active Substance: INSULIN DEGLUDEC
     Indication: PRODUCT USED FOR UNKNOWN INDICATION
     Dosage: UNK UNK, QHS
     Route: 065

REACTIONS (8)
  - Pain [Unknown]
  - Headache [Unknown]
  - Diabetes mellitus [Unknown]
  - Arthralgia [Unknown]
  - Bone pain [Unknown]
  - Rheumatoid arthritis [Unknown]
  - Constipation [Unknown]
  - Fatigue [Unknown]
